FAERS Safety Report 21996421 (Version 4)
Quarter: 2023Q2

REPORT INFORMATION
  Report Type: Spontaneous
  Country: US (occurrence: US)
  Receive Date: 20230215
  Receipt Date: 20230421
  Transmission Date: 20230721
  Serious: Yes (Hospitalization)
  Sender: FDA-Public Use
  Company Number: US-PFIZER INC-PV202300028686

PATIENT
  Age: 64 Year
  Sex: Female
  Weight: 75.737 kg

DRUGS (1)
  1. IBRANCE [Suspect]
     Active Substance: PALBOCICLIB
     Dosage: 75 MG, CYCLIC (21 DAYS THEN 7 DAYS OFF)
     Dates: start: 20230213

REACTIONS (3)
  - Bone marrow disorder [Recovering/Resolving]
  - Anxiety [Unknown]
  - Neoplasm progression [Unknown]
